FAERS Safety Report 6310563-7 (Version None)
Quarter: 2009Q3

REPORT INFORMATION
  Report Type: 
  Country: None (occurrence: None)
  Receive Date: 20090811
  Receipt Date: 20090610
  Transmission Date: 20100115
  Serious: No
  Sender: FDA-Public Use
  Company Number: 1000006741

PATIENT
  Age: 55 Year
  Sex: Male

DRUGS (12)
  1. SAVELLA [Suspect]
     Indication: FIBROMYALGIA
     Dosage: 12.5 MG (12.5 MG, 1 IN 1 D) , ORAL : 25 MG (12.5 MG, 2 IN 1 D) , ORAL
     Route: 048
     Dates: start: 20090527, end: 20090527
  2. SAVELLA [Suspect]
     Indication: FIBROMYALGIA
     Dosage: 12.5 MG (12.5 MG, 1 IN 1 D) , ORAL : 25 MG (12.5 MG, 2 IN 1 D) , ORAL
     Route: 048
     Dates: start: 20090528, end: 20090529
  3. SAVELLA [Suspect]
     Indication: FIBROMYALGIA
     Dosage: 50 MG (25 MG, 2 IN 1 D) , ORAL
     Route: 048
     Dates: start: 20090530, end: 20090531
  4. METHADONE [Concomitant]
  5. SYNTHROID [Concomitant]
  6. HYDROCORTISONE [Concomitant]
  7. ENALAPRIL MALEATE [Concomitant]
  8. POTASSIUM CITRATE [Concomitant]
  9. BACLOFEN [Concomitant]
  10. AMITIZA [Concomitant]
  11. MIRALAX [Concomitant]
  12. ANDROGEL [Concomitant]

REACTIONS (3)
  - MAJOR DEPRESSION [None]
  - OSCILLOPSIA [None]
  - VOMITING [None]
